FAERS Safety Report 6556841-8 (Version None)
Quarter: 2010Q1

REPORT INFORMATION
  Report Type: 
  Country: None (occurrence: None)
  Receive Date: 20100128
  Receipt Date: 20100121
  Transmission Date: 20100710
  Serious: Yes (Death, Other)
  Sender: FDA-Public Use
  Company Number: PHHY2010FR03349

PATIENT
  Sex: Male

DRUGS (7)
  1. TAREG [Suspect]
     Dosage: UNK
     Dates: end: 20090922
  2. GEMCITABINE [Suspect]
     Indication: PANCREATIC CARCINOMA
     Dosage: 38 MG, UNK
     Route: 042
     Dates: start: 20090122, end: 20090812
  3. TRIMETAZIDINE [Suspect]
     Dosage: UNK
     Dates: end: 20090922
  4. IXPRIM [Suspect]
     Dosage: 1 DF, TID
     Dates: start: 20090201, end: 20090909
  5. SMECTA ^DAE WOONG^ [Suspect]
     Dosage: UNK
     Dates: start: 20090227, end: 20090922
  6. TIORFAN [Suspect]
     Dosage: UNK
     Dates: start: 20090227, end: 20090922
  7. ARIXTRA [Suspect]
     Dosage: UNK
     Dates: start: 20090812, end: 20090909

REACTIONS (7)
  - ARTERIAL DISORDER [None]
  - ERYSIPELAS [None]
  - EXTRAVASATION [None]
  - ISCHAEMIA [None]
  - NEOPLASM MALIGNANT [None]
  - OEDEMA PERIPHERAL [None]
  - SKIN ULCER [None]
